FAERS Safety Report 22347172 (Version 1)
Quarter: 2023Q2

REPORT INFORMATION
  Report Type: Spontaneous
  Country: US (occurrence: US)
  Receive Date: 20230520
  Receipt Date: 20230520
  Transmission Date: 20230721
  Serious: Yes (Other)
  Sender: FDA-Public Use
  Company Number: US-LUOXINA-LUX-2023-US-LIT-00022

PATIENT
  Age: 65 Year
  Sex: Female

DRUGS (12)
  1. IPRATROPIUM BROMIDE [Suspect]
     Active Substance: IPRATROPIUM BROMIDE\IPRATROPIUM BROMIDE ANHYDROUS
     Indication: Subcutaneous emphysema
  2. IPRATROPIUM BROMIDE [Suspect]
     Active Substance: IPRATROPIUM BROMIDE\IPRATROPIUM BROMIDE ANHYDROUS
     Indication: Pneumomediastinum
  3. LEVALBUTEROL [Suspect]
     Active Substance: LEVALBUTEROL
     Indication: Pneumomediastinum
  4. LEVALBUTEROL [Suspect]
     Active Substance: LEVALBUTEROL
     Indication: Subcutaneous emphysema
  5. TERBUTALINE [Suspect]
     Active Substance: TERBUTALINE
     Indication: Subcutaneous emphysema
  6. TERBUTALINE [Suspect]
     Active Substance: TERBUTALINE
     Indication: Pneumomediastinum
  7. THEOPHYLLINE [Suspect]
     Active Substance: THEOPHYLLINE
     Indication: Pneumomediastinum
  8. THEOPHYLLINE [Suspect]
     Active Substance: THEOPHYLLINE
     Indication: Subcutaneous emphysema
  9. BUDESONIDE [Suspect]
     Active Substance: BUDESONIDE
     Indication: Subcutaneous emphysema
  10. BUDESONIDE [Suspect]
     Active Substance: BUDESONIDE
     Indication: Pneumomediastinum
  11. MAGNESIUM [Suspect]
     Active Substance: MAGNESIUM
     Indication: Subcutaneous emphysema
  12. MAGNESIUM [Suspect]
     Active Substance: MAGNESIUM
     Indication: Pneumomediastinum

REACTIONS (1)
  - Therapy non-responder [Unknown]
